FAERS Safety Report 6815104-3 (Version None)
Quarter: 2010Q3

REPORT INFORMATION
  Report Type: 
  Country: None (occurrence: None)
  Receive Date: 20100701
  Receipt Date: 20100701
  Transmission Date: 20110219
  Serious: Yes (Life-Threatening, Hospitalization)
  Sender: FDA-Public Use
  Company Number: None

PATIENT
  Age: 66 Year
  Sex: Male
  Weight: 74.8435 kg

DRUGS (2)
  1. CITALOPRAM HYDROBROMIDE [Suspect]
     Dosage: 1 A - DAY
     Dates: start: 20100503
  2. CITALOPRAM HYDROBROMIDE [Suspect]
     Dosage: 1 A - DAY
     Dates: start: 20100604

REACTIONS (6)
  - AMNESIA [None]
  - DEPRESSION [None]
  - HEADACHE [None]
  - IMPULSIVE BEHAVIOUR [None]
  - INSOMNIA [None]
  - SUICIDAL IDEATION [None]
